FAERS Safety Report 4763126-9 (Version None)
Quarter: 2005Q3

REPORT INFORMATION
  Report Type: 
  Country: None (occurrence: None)
  Receive Date: 20050826
  Receipt Date: 20041029
  Transmission Date: 20060218
  Serious: Yes (Hospitalization, Other)
  Sender: FDA-Public Use
  Company Number: USA-2004-0014557

PATIENT
  Age: 16 Year
  Sex: Female

DRUGS (3)
  1. OXYCONTIN [Suspect]
  2. KLONOPIN [Suspect]
  3. ALCOHOL (ETHANOL) [Suspect]

REACTIONS (4)
  - CARDIAC ARREST [None]
  - COMA [None]
  - MULTIPLE DRUG OVERDOSE [None]
  - POLYSUBSTANCE ABUSE [None]
